FAERS Safety Report 24999462 (Version 2)
Quarter: 2025Q1

REPORT INFORMATION
  Report Type: Spontaneous
  Country: US (occurrence: US)
  Receive Date: 20250222
  Receipt Date: 20250222
  Transmission Date: 20250409
  Serious: No
  Sender: SANOFI AVENTIS
  Company Number: US-SA-2025SA045508

PATIENT
  Sex: Male
  Weight: 127.27 kg

DRUGS (8)
  1. DUPIXENT [Suspect]
     Active Substance: DUPILUMAB
     Indication: Neurodermatitis
     Route: 058
  2. DUPIXENT [Suspect]
     Active Substance: DUPILUMAB
     Dosage: 300 MG, QOW
     Route: 058
  3. NIFEDIPINE [Concomitant]
     Active Substance: NIFEDIPINE
  4. OXYCODONE [Concomitant]
     Active Substance: OXYCODONE
  5. NYSTATIN [Concomitant]
     Active Substance: NYSTATIN
  6. IRBESARTAN [Concomitant]
     Active Substance: IRBESARTAN
  7. METOPROLOL SUCCINATE [Concomitant]
     Active Substance: METOPROLOL SUCCINATE
  8. DOXAZOSIN MESYLATE [Concomitant]
     Active Substance: DOXAZOSIN MESYLATE

REACTIONS (3)
  - Rhinorrhoea [Not Recovered/Not Resolved]
  - Blood pressure increased [Recovered/Resolved]
  - Blood pressure decreased [Not Recovered/Not Resolved]
